FAERS Safety Report 6004596-8 (Version None)
Quarter: 2008Q4

REPORT INFORMATION
  Report Type: 
  Country: None (occurrence: None)
  Receive Date: 20081216
  Receipt Date: 20080401
  Transmission Date: 20090506
  Serious: No
  Sender: FDA-Public Use
  Company Number: US-BRISTOL-MYERS SQUIBB COMPANY-14133631

PATIENT
  Sex: Female

DRUGS (2)
  1. PRAVASTATIN SODIUM [Suspect]
  2. ALOE VESTA 2-N-1 SKIN CONDITIONER [Suspect]
     Dates: start: 20080301

REACTIONS (2)
  - NASAL DISCOMFORT [None]
  - RHINORRHOEA [None]
